FAERS Safety Report 8000915-1 (Version None)
Quarter: 2011Q4

REPORT INFORMATION
  Report Type: 
  Country: None (occurrence: None)
  Receive Date: 20111222
  Receipt Date: 20111214
  Transmission Date: 20120403
  Serious: Yes (Other)
  Sender: FDA-Public Use
  Company Number: US-CELGENEUS-163-21880-11121995

PATIENT
  Sex: Female
  Weight: 101.4 kg

DRUGS (12)
  1. ASPIRIN [Concomitant]
     Indication: ANTIPLATELET THERAPY
  2. CIPROFLOXACIN [Concomitant]
     Indication: ANTIBIOTIC PROPHYLAXIS
     Dosage: 500 MILLIGRAM
     Route: 048
     Dates: start: 20110812
  3. METOPROLOL ER SUCCINATE [Concomitant]
     Indication: BLOOD PRESSURE
     Dosage: 100 MILLIGRAM
     Route: 048
     Dates: start: 20100806
  4. CARFILZOMIB [Suspect]
     Indication: MULTIPLE MYELOMA
     Route: 065
  5. LANSOPRAZOLE [Concomitant]
     Dosage: 15 MILLIGRAM
     Route: 048
     Dates: start: 20110812
  6. REVLIMID [Suspect]
     Indication: MULTIPLE MYELOMA
     Dosage: 25 MILLIGRAM
     Route: 048
     Dates: start: 20110812, end: 20111103
  7. DEXAMETHASONE [Suspect]
     Indication: MULTIPLE MYELOMA
     Dosage: 40 MILLIGRAM
     Route: 065
     Dates: start: 20110812
  8. PLAVIX [Concomitant]
     Indication: PROPHYLAXIS
     Dosage: 75 MILLIGRAM
     Route: 048
     Dates: start: 20101209
  9. ASPIRIN [Concomitant]
     Indication: ANTICOAGULANT THERAPY
     Dosage: 81 MILLIGRAM
     Route: 048
     Dates: start: 20100608
  10. MAGNESIUM OXIDE [Concomitant]
     Dosage: 500 MILLIGRAM
     Route: 048
     Dates: start: 20080630
  11. DEXAMETHASONE [Suspect]
     Dosage: 20 MILLIGRAM
     Route: 065
     Dates: start: 20110909, end: 20111028
  12. NEURONTIN [Concomitant]
     Dosage: 300 MILLIGRAM
     Route: 048
     Dates: start: 20080208

REACTIONS (1)
  - NON-SMALL CELL LUNG CANCER [None]
